FAERS Safety Report 5736621-3 (Version None)
Quarter: 2008Q2

REPORT INFORMATION
  Report Type: 
  Country: None (occurrence: None)
  Receive Date: 20080513
  Receipt Date: 20080506
  Transmission Date: 20081010
  Serious: Yes (Other)
  Sender: FDA-Public Use
  Company Number: CA-ASTRAZENECA-2008UW09258

PATIENT
  Sex: Male

DRUGS (7)
  1. CRESTOR [Suspect]
     Route: 048
     Dates: start: 20080101
  2. CRESTOR [Suspect]
     Route: 048
     Dates: start: 20071101, end: 20080101
  3. DIGOXIN [Concomitant]
     Route: 048
  4. DILTIAZEM [Concomitant]
     Route: 048
  5. VASOTEC [Concomitant]
     Route: 048
  6. HYDROCHLOROTHIAZIDE [Concomitant]
     Route: 048
  7. PARIET [Concomitant]
     Route: 048

REACTIONS (1)
  - CHROMATURIA [None]
